FAERS Safety Report 4568102-7 (Version None)
Quarter: 2005Q1

REPORT INFORMATION
  Report Type: 
  Country: None (occurrence: None)
  Receive Date: 20050128
  Receipt Date: 20050119
  Transmission Date: 20050727
  Serious: Yes (Congenital Anomaly)
  Sender: FDA-Public Use
  Company Number: 2004-BP-05705BP

PATIENT
  Age: 0 Day
  Sex: Male

DRUGS (5)
  1. VIRAMUNE [Suspect]
     Indication: HIV INFECTION
     Dosage: 400 MG (200 MG), IU
     Route: 015
     Dates: start: 20031219
  2. VIREAD [Suspect]
     Indication: HIV INFECTION
     Dosage: 300 MG, IU
     Route: 015
     Dates: start: 20030310
  3. EPIVIR [Suspect]
     Indication: HIV INFECTION
     Dosage: 300 MG, IU
     Route: 015
     Dates: start: 20030310, end: 20040219
  4. SUSTIVA [Suspect]
     Indication: HIV INFECTION
     Dosage: 600 MG, IU
     Route: 015
     Dates: start: 20030310, end: 20040313
  5. COMBIVIR [Suspect]
     Indication: HIV INFECTION
     Dosage: 2 ANZ, IU
     Route: 015
     Dates: start: 20040220

REACTIONS (6)
  - CAESAREAN SECTION [None]
  - CONGENITAL HEARING DISORDER [None]
  - CYTOMEGALOVIRUS INFECTION [None]
  - DRUG EXPOSURE DURING PREGNANCY [None]
  - MATERNAL CONDITION AFFECTING FOETUS [None]
  - MENINGOMYELOCELE [None]
